FAERS Safety Report 20290932 (Version 3)
Quarter: 2022Q1

REPORT INFORMATION
  Report Type: Spontaneous
  Country: GR (occurrence: GR)
  Receive Date: 20220104
  Receipt Date: 20220322
  Transmission Date: 20220423
  Serious: No
  Sender: FDA-Public Use
  Company Number: GR-PFIZER INC-202101734456

PATIENT
  Age: 8 Year
  Sex: Male

DRUGS (1)
  1. GENOTROPIN [Suspect]
     Active Substance: SOMATROPIN
     Indication: Hypopituitarism
     Dosage: 0.7 MG, DAILY
     Route: 058
     Dates: start: 20210426

REACTIONS (2)
  - Drug dose omission by device [Unknown]
  - Device deployment issue [Unknown]
